FAERS Safety Report 10363799 (Version 2)
Quarter: 2014Q3

REPORT INFORMATION
  Report Type: Spontaneous
  Country: US (occurrence: US)
  Receive Date: 20140805
  Receipt Date: 20140805
  Transmission Date: 20150326
  Serious: Yes (Hospitalization, Other)
  Sender: FDA-Public Use
  Company Number: US-009507513-2009-189352-NL

PATIENT
  Sex: Female
  Weight: 77.1 kg

DRUGS (4)
  1. NUVARING [Suspect]
     Active Substance: ETHINYL ESTRADIOL\ETONOGESTREL
     Indication: OVARIAN CYST
     Route: 067
     Dates: start: 20070101, end: 200701
  2. VALTREX [Concomitant]
     Active Substance: VALACYCLOVIR HYDROCHLORIDE
     Indication: HERPES ZOSTER
     Dosage: UNK UNK, PRN
  3. FLUOXETINE [Concomitant]
     Active Substance: FLUOXETINE\FLUOXETINE HYDROCHLORIDE
     Indication: DYSMENORRHOEA
     Dosage: 20 MG, QD
     Route: 048
     Dates: start: 2006
  4. HEPARIN [Suspect]
     Active Substance: HEPARIN SODIUM
     Indication: ANTICOAGULANT THERAPY
     Route: 042
     Dates: start: 20070122, end: 20070127

REACTIONS (16)
  - Chromaturia [Unknown]
  - Haemorrhagic anaemia [Unknown]
  - Uterine polyp [Unknown]
  - Leukocytosis [Unknown]
  - Pollakiuria [Unknown]
  - Sinusitis [Unknown]
  - Constipation [Recovering/Resolving]
  - Off label use [Unknown]
  - Portal vein thrombosis [Unknown]
  - Splenic vein thrombosis [Unknown]
  - Coagulopathy [Unknown]
  - Nausea [Unknown]
  - Vomiting [Unknown]
  - Bronchitis [Unknown]
  - Uterine leiomyoma [Unknown]
  - Epistaxis [Unknown]

NARRATIVE: CASE EVENT DATE: 20070119
